FAERS Safety Report 9242631 (Version 1)
Quarter: 2013Q2

REPORT INFORMATION
  Report Type: Spontaneous
  Country: DK (occurrence: DK)
  Receive Date: 20130419
  Receipt Date: 20130419
  Transmission Date: 20140414
  Serious: Yes (Other)
  Sender: FDA-Public Use
  Company Number: DK-GLAXOSMITHKLINE-B0811677A

PATIENT
  Sex: Male

DRUGS (2)
  1. FLIXONASE [Suspect]
     Indication: NASAL CONGESTION
     Route: 045
     Dates: start: 2002
  2. CLARITYN [Concomitant]
     Dosage: 4TAB WEEKLY

REACTIONS (2)
  - Anosmia [Not Recovered/Not Resolved]
  - Hypogeusia [Not Recovered/Not Resolved]
